FAERS Safety Report 10639787 (Version 8)
Quarter: 2016Q4

REPORT INFORMATION
  Report Type: Report from Study
  Country: BR (occurrence: BR)
  Receive Date: 20141209
  Receipt Date: 20161107
  Transmission Date: 20170206
  Serious: Yes (Hospitalization, Other)
  Sender: FDA-Public Use
  Company Number: BR-ROCHE-1503481

PATIENT
  Age: 46 Year
  Sex: Female
  Weight: 72 kg

DRUGS (9)
  1. MABTHERA [Suspect]
     Active Substance: RITUXIMAB
     Dosage: ON DAY 1 AND DAY 15.
     Route: 042
     Dates: start: 201405
  2. SINVALIP [Concomitant]
  3. MABTHERA [Suspect]
     Active Substance: RITUXIMAB
     Dosage: MOST RECENT INFUSION 19/FEB/2016
     Route: 042
     Dates: start: 20150708
  4. FOLIC ACID. [Concomitant]
     Active Substance: FOLIC ACID
  5. PRISTIQ EXTENDED-RELEASE [Concomitant]
     Active Substance: DESVENLAFAXINE SUCCINATE
  6. MABTHERA [Suspect]
     Active Substance: RITUXIMAB
     Indication: RHEUMATOID ARTHRITIS
     Route: 042
     Dates: start: 20140514, end: 20140529
  7. MABTHERA [Suspect]
     Active Substance: RITUXIMAB
     Route: 042
     Dates: start: 201501
  8. ARADOIS [Concomitant]
     Active Substance: LOSARTAN POTASSIUM
     Indication: HYPERTENSION
     Dosage: 50/12.5 MG
     Route: 065
  9. ARAVA [Concomitant]
     Active Substance: LEFLUNOMIDE
     Indication: RHEUMATOID ARTHRITIS
     Route: 065
     Dates: start: 2013

REACTIONS (24)
  - Arthropathy [Unknown]
  - Arthritis infective [Not Recovered/Not Resolved]
  - Joint swelling [Not Recovered/Not Resolved]
  - Pleural effusion [Recovered/Resolved]
  - Immunodeficiency [Unknown]
  - Pneumonia [Recovered/Resolved]
  - Nosocomial infection [Unknown]
  - Acute kidney injury [Recovered/Resolved]
  - Lung perforation [Recovered/Resolved]
  - Bacteraemia [Recovering/Resolving]
  - Arthritis [Not Recovered/Not Resolved]
  - Memory impairment [Not Recovered/Not Resolved]
  - Red blood cell sedimentation rate increased [Not Recovered/Not Resolved]
  - Pain [Not Recovered/Not Resolved]
  - Arthralgia [Not Recovered/Not Resolved]
  - Anaemia [Recovering/Resolving]
  - Bone disorder [Unknown]
  - Device related infection [Recovered/Resolved]
  - Depression [Not Recovered/Not Resolved]
  - Pain in extremity [Not Recovered/Not Resolved]
  - Hypersensitivity [Recovered/Resolved]
  - Device related infection [Not Recovered/Not Resolved]
  - Knee deformity [Unknown]
  - Ill-defined disorder [Not Recovered/Not Resolved]

NARRATIVE: CASE EVENT DATE: 201501
